FAERS Safety Report 5412469-4 (Version None)
Quarter: 2007Q3

REPORT INFORMATION
  Report Type: 
  Country: None (occurrence: None)
  Receive Date: 20070713
  Receipt Date: 20070413
  Transmission Date: 20080115
  Serious: Yes (Hospitalization, Other)
  Sender: FDA-Public Use
  Company Number: US-JNJFOC-20061000800

PATIENT
  Age: 21 Year
  Sex: Female
  Weight: 145.6046 kg

DRUGS (3)
  1. ORTHO EVRA [Suspect]
     Indication: MENSTRUAL DISORDER
     Dosage: 1 DOSE(S), 1 IN 1 WEEK, TRANSDERMAL
     Route: 062
     Dates: start: 20040331, end: 20041101
  2. METFORMIN HCL [Concomitant]
  3. FERROUS SULFATE TAB [Concomitant]

REACTIONS (2)
  - PNEUMONIA [None]
  - PULMONARY EMBOLISM [None]
